FAERS Safety Report 8836160 (Version 1)
Quarter: 2012Q4

REPORT INFORMATION
  Report Type: 
  Country: AR (occurrence: AR)
  Receive Date: 20121011
  Receipt Date: 20121011
  Transmission Date: 20130627
  Serious: Yes (Hospitalization, Other)
  Sender: FDA-Public Use
  Company Number: PHHY2012AR090029

PATIENT
  Age: 56 Year
  Sex: Male

DRUGS (1)
  1. DIOVAN D [Suspect]
     Indication: HYPERTENSION
     Dosage: 80 mg, daily

REACTIONS (3)
  - Road traffic accident [Recovering/Resolving]
  - Multiple injuries [Recovering/Resolving]
  - Diabetes mellitus [Recovering/Resolving]
